FAERS Safety Report 9411992 (Version 2)
Quarter: 2013Q3

REPORT INFORMATION
  Report Type: Spontaneous
  Country: FR (occurrence: FR)
  Receive Date: 20130722
  Receipt Date: 20130726
  Transmission Date: 20140515
  Serious: Yes (Death, Life-Threatening, Hospitalization)
  Sender: FDA-Public Use
  Company Number: FR-JNJFOC-20130709647

PATIENT
  Age: 89 Year
  Sex: Male
  Weight: 120 kg

DRUGS (7)
  1. XARELTO [Suspect]
     Indication: CEREBROVASCULAR ACCIDENT PROPHYLAXIS
     Dosage: EVENING
     Route: 048
     Dates: start: 201301, end: 20130607
  2. XARELTO [Suspect]
     Indication: ATRIAL FIBRILLATION
     Dosage: EVENING
     Route: 048
     Dates: start: 201301, end: 20130607
  3. NEBIVOLOL [Concomitant]
     Route: 065
  4. ATACAND [Concomitant]
     Route: 065
  5. LASILIX [Concomitant]
     Route: 065
  6. MOVICOL [Concomitant]
     Route: 065
  7. INSPRA [Concomitant]
     Route: 065

REACTIONS (2)
  - Pulmonary embolism [Fatal]
  - Pulmonary embolism [Not Recovered/Not Resolved]
